FAERS Safety Report 7788171-0 (Version None)
Quarter: 2011Q3

REPORT INFORMATION
  Report Type: 
  Country: None (occurrence: None)
  Receive Date: 20110930
  Receipt Date: 20110919
  Transmission Date: 20111222
  Serious: Yes (Hospitalization, Other)
  Sender: FDA-Public Use
  Company Number: CA-JNJFOC-20110909167

PATIENT
  Sex: Female
  Weight: 79 kg

DRUGS (4)
  1. PULMICORT [Concomitant]
     Route: 065
  2. REMICADE [Suspect]
     Indication: CROHN'S DISEASE
     Route: 042
  3. OXEZE [Concomitant]
     Route: 065
  4. REMICADE [Suspect]
     Dosage: 23RD INFUSION
     Route: 042
     Dates: start: 20110723

REACTIONS (6)
  - PALLOR [None]
  - PANCREATIC ENLARGEMENT [None]
  - ASTHENIA [None]
  - HEADACHE [None]
  - FATIGUE [None]
  - NAUSEA [None]
